FAERS Safety Report 6875347-X (Version None)
Quarter: 2010Q3

REPORT INFORMATION
  Report Type: 
  Country: None (occurrence: None)
  Receive Date: 20100727
  Receipt Date: 20070702
  Transmission Date: 20110219
  Serious: Yes (Hospitalization, Other)
  Sender: FDA-Public Use
  Company Number: US-PFIZER INC-2006150660

PATIENT
  Sex: Male
  Weight: 104.3 kg

DRUGS (6)
  1. CELEBREX [Suspect]
     Indication: OSTEOARTHRITIS
     Route: 048
     Dates: start: 19990205
  2. VIOXX [Suspect]
     Indication: OSTEOARTHRITIS
     Route: 048
     Dates: start: 20000415
  3. FUROSEMIDE [Concomitant]
     Dates: start: 19970101
  4. SPIRONOLACTONE [Concomitant]
     Dates: start: 19970101
  5. ASPIRIN [Concomitant]
     Dates: start: 19970101
  6. PROPOXYPHENE HCL [Concomitant]
     Dates: start: 20000203, end: 20030101

REACTIONS (2)
  - CARDIAC FAILURE CONGESTIVE [None]
  - MYOCARDIAL INFARCTION [None]
